FAERS Safety Report 11144963 (Version 2)
Quarter: 2015Q3

REPORT INFORMATION
  Report Type: Spontaneous
  Country: US (occurrence: US)
  Receive Date: 20150528
  Receipt Date: 20150721
  Transmission Date: 20151125
  Serious: No
  Sender: FDA-Public Use
  Company Number: US-ASTRAZENECA-2015SE41840

PATIENT
  Sex: Female

DRUGS (1)
  1. BYDUREON [Suspect]
     Active Substance: EXENATIDE
     Route: 058
     Dates: start: 201504

REACTIONS (4)
  - Pain in extremity [Unknown]
  - Injection site pain [Unknown]
  - Injection site nodule [Unknown]
  - Fatigue [Unknown]

NARRATIVE: CASE EVENT DATE: 201507
